FAERS Safety Report 9419704 (Version 1)
Quarter: 2013Q3

REPORT INFORMATION
  Report Type: Spontaneous
  Country: US (occurrence: None)
  Receive Date: 20130723
  Receipt Date: 20130723
  Transmission Date: 20140515
  Serious: No
  Sender: FDA-Public Use
  Company Number: None

PATIENT
  Age: 56 Year
  Sex: Male
  Weight: 89.81 kg

DRUGS (1)
  1. OXYCODONE/ACETAMINOPHEN [Suspect]
     Indication: BACK PAIN
     Dosage: ONE   Q6H PRN PAIN  OTHER
     Route: 050
     Dates: start: 20130713, end: 20130716

REACTIONS (3)
  - Vomiting [None]
  - Nausea [None]
  - Product quality issue [None]
